FAERS Safety Report 6450700-7 (Version None)
Quarter: 2009Q4

REPORT INFORMATION
  Report Type: 
  Country: None (occurrence: None)
  Receive Date: 20091123
  Receipt Date: 20091110
  Transmission Date: 20100525
  Serious: Yes (Hospitalization)
  Sender: FDA-Public Use
  Company Number: ES-ELI_LILLY_AND_COMPANY-ES200911003049

PATIENT
  Age: 78 Year
  Sex: Female

DRUGS (5)
  1. FORTEO [Suspect]
     Indication: OSTEOPOROSIS
     Dosage: 20 UG, UNKNOWN
     Route: 058
     Dates: start: 20071001, end: 20091020
  2. INSULINE [Concomitant]
     Indication: DIABETES MELLITUS
     Dosage: UNK, 3/D
     Route: 065
  3. NOLOTIL [Concomitant]
     Dosage: UNK, UNKNOWN
     Route: 065
  4. PARACETAMOL [Concomitant]
     Dosage: UNK, UNKNOWN
     Route: 065
  5. SEGURIL [Concomitant]
     Indication: HYPERTENSION
     Dosage: UNK, UNKNOWN
     Route: 065

REACTIONS (2)
  - FALL [None]
  - HIP FRACTURE [None]
